FAERS Safety Report 18957281 (Version 1)
Quarter: 2021Q1

REPORT INFORMATION
  Report Type: Spontaneous
  Country: US (occurrence: US)
  Receive Date: 20210302
  Receipt Date: 20210302
  Transmission Date: 20210420
  Serious: Yes (Other)
  Sender: FDA-Public Use
  Company Number: US-PFIZER INC-2001080936US

PATIENT
  Age: 69 Year
  Sex: Male

DRUGS (32)
  1. ALBUTEROL [SALBUTAMOL] [Concomitant]
     Active Substance: ALBUTEROL
     Dosage: 2 PUFFS, 4X/DAY
     Route: 055
  2. ALLOPURINOL. [Concomitant]
     Active Substance: ALLOPURINOL
     Dosage: 200 MG, 1X/DAY
  3. AMLODIPINE BESILATE [Concomitant]
     Active Substance: AMLODIPINE BESYLATE
     Dosage: 5 MG, 1X/DAY
  4. VITAMIN K [PHYTOMENADIONE] [Concomitant]
     Dosage: UNK
     Dates: start: 20000223, end: 20000409
  5. VITAMIN K [PHYTOMENADIONE] [Concomitant]
     Dosage: UNK
     Dates: start: 19990826, end: 19990921
  6. WARFARIN [Interacting]
     Active Substance: WARFARIN
     Dosage: 45.5 MG, WEEKLY
     Dates: start: 19981215, end: 19990615
  7. WARFARIN [Interacting]
     Active Substance: WARFARIN
     Dosage: 38.5 MG, WEEKLY
     Dates: start: 20000104
  8. ACETYLSALICYLIC ACID [Concomitant]
     Active Substance: ASPIRIN
     Dosage: 325 MG, 1X/DAY
  9. VITAMIN K [PHYTOMENADIONE] [Concomitant]
     Dosage: UNK
     Dates: start: 19991222, end: 20000222
  10. POTASSIUM CHLORIDE. [Concomitant]
     Active Substance: POTASSIUM CHLORIDE
     Dosage: 10 MEQ, 1X/DAY
  11. THEOPHYLLINE [Concomitant]
     Active Substance: THEOPHYLLINE ANHYDROUS
     Dosage: 300 MG, 2X/DAY
     Route: 048
  12. FUROSEMIDE. [Concomitant]
     Active Substance: FUROSEMIDE
     Dosage: 40 MG, 2X/DAY
  13. LISINOPRIL. [Concomitant]
     Active Substance: LISINOPRIL
     Dosage: 40 MG, 1X/DAY
  14. VITAMIN K [PHYTOMENADIONE] [Concomitant]
     Dosage: UNK
     Dates: start: 19991122, end: 19991221
  15. SIMVASTATIN. [Concomitant]
     Active Substance: SIMVASTATIN
     Dosage: 40 MG, 1X/DAY AT BEDTIME
  16. COLCHICINE. [Concomitant]
     Active Substance: COLCHICINE
     Dosage: 0.6 MG, 1X/DAY
  17. DIGOXIN. [Concomitant]
     Active Substance: DIGOXIN
     Dosage: 0.25 MG, 1X/DAY
  18. VITAMIN K [PHYTOMENADIONE] [Concomitant]
     Dosage: UNK
     Dates: start: 20000410
  19. TRAZODONE HYDROCHLORIDE. [Concomitant]
     Active Substance: TRAZODONE HYDROCHLORIDE
     Dosage: 50 MG, 1X/DAY AT BEDTIME
  20. CELEBREX [Suspect]
     Active Substance: CELECOXIB
     Indication: ARTHRITIS
     Dosage: 200 MG, AS NEEDED
     Dates: start: 19990508, end: 19990529
  21. CELEBREX [Interacting]
     Active Substance: CELECOXIB
     Dosage: 200 MG, 1X/DAY
     Dates: start: 19990816, end: 199909
  22. CELEBREX [Interacting]
     Active Substance: CELECOXIB
     Dosage: 200 MG 2?3 TIMES PER WEEK
     Dates: start: 199909, end: 19991006
  23. CELEBREX [Interacting]
     Active Substance: CELECOXIB
     Dosage: 200 MG 3 TIMES PER WEEK
     Dates: start: 19991020, end: 19991110
  24. CELEBREX [Interacting]
     Active Substance: CELECOXIB
     Dosage: 200 MG, 1X/DAY
     Dates: start: 19991129
  25. WARFARIN [Interacting]
     Active Substance: WARFARIN
     Dosage: 42 MG, WEEKLY
     Dates: start: 19990616, end: 20000103
  26. VITAMIN K [PHYTOMENADIONE] [Concomitant]
     Dosage: UNK
     Dates: start: 19990408, end: 19990615
  27. VITAMIN K [PHYTOMENADIONE] [Concomitant]
     Dosage: UNK
     Dates: start: 19990616, end: 19990825
  28. VITAMIN K [PHYTOMENADIONE] [Concomitant]
     Dosage: UNK
     Dates: start: 19991020, end: 19991109
  29. VITAMIN K [PHYTOMENADIONE] [Concomitant]
     Dosage: UNK
     Dates: start: 19990126, end: 19990407
  30. TERAZOSIN HYDROCHLORIDE. [Concomitant]
     Active Substance: TERAZOSIN HYDROCHLORIDE
     Dosage: 5 MG, 1X/DAY AT BEDTIME
  31. VITAMIN K [PHYTOMENADIONE] [Concomitant]
     Dosage: UNK
     Dates: start: 19991110, end: 19991121
  32. VITAMIN K [PHYTOMENADIONE] [Concomitant]
     Dosage: UNK
     Dates: start: 19990922, end: 19991019

REACTIONS (2)
  - Drug interaction [Recovered/Resolved]
  - International normalised ratio increased [Recovered/Resolved]
